FAERS Safety Report 12463960 (Version 6)
Quarter: 2017Q4

REPORT INFORMATION
  Report Type: Spontaneous
  Country: BE (occurrence: BE)
  Receive Date: 20160614
  Receipt Date: 20171030
  Transmission Date: 20180320
  Serious: Yes (Hospitalization, Disabling, Other)
  Sender: FDA-Public Use
  Company Number: BE-TAKEDA-2016MPI005418

PATIENT
  Age: 67 Year
  Sex: Male
  Weight: 68.6 kg

DRUGS (34)
  1. PREDNISONE. [Suspect]
     Active Substance: PREDNISONE
     Indication: PLASMA CELL MYELOMA
     Dosage: 100 MG, UNK
     Route: 048
     Dates: start: 20150908
  2. DUROGESIC [Concomitant]
     Active Substance: FENTANYL
     Dosage: 200 ?G, UNK
     Route: 061
     Dates: start: 20151009, end: 20160209
  3. DAFALGAN [Concomitant]
     Active Substance: ACETAMINOPHEN
     Indication: PAIN
     Dosage: 1 G, QID
     Route: 048
     Dates: start: 2015
  4. PARACETAMOL [Concomitant]
     Active Substance: ACETAMINOPHEN
     Dosage: UNK, QID
     Route: 065
  5. D-CURE [Concomitant]
     Indication: OSTEOPOROSIS PROPHYLAXIS
     Dosage: 1 ML, 1/WEEK
     Route: 048
     Dates: start: 20160530
  6. VELCADE [Suspect]
     Active Substance: BORTEZOMIB
     Indication: PLASMA CELL MYELOMA
     Dosage: 1.17 MG, UNK
     Route: 058
     Dates: start: 20150908
  7. ZOVIRAX [Concomitant]
     Active Substance: ACYCLOVIR
     Indication: ANTIVIRAL PROPHYLAXIS
     Dosage: 800 MG, BID
     Route: 048
     Dates: start: 20150908
  8. ZOMETA [Concomitant]
     Active Substance: ZOLEDRONIC ACID
     Indication: PLASMA CELL MYELOMA
     Dosage: 1 MG, UNK
     Route: 042
     Dates: start: 20150929, end: 20150929
  9. ZOMETA [Concomitant]
     Active Substance: ZOLEDRONIC ACID
     Dosage: 4 MG, UNK
     Route: 042
     Dates: start: 20151117
  10. ZOLPIDEM [Concomitant]
     Active Substance: ZOLPIDEM\ZOLPIDEM TARTRATE
     Indication: INSOMNIA
     Dosage: 10 MG, QD
     Route: 048
     Dates: start: 20150823, end: 20151222
  11. ASAFLOW [Concomitant]
     Active Substance: ASPIRIN
     Indication: EMBOLISM
     Dosage: 80 MG, QD
     Route: 048
     Dates: start: 20160303
  12. ZOLADEX [Concomitant]
     Active Substance: GOSERELIN ACETATE
     Indication: PROSTATE CANCER
     Dosage: 10.8 MG, UNK
     Route: 058
     Dates: start: 2010
  13. DUROGESIC [Concomitant]
     Active Substance: FENTANYL
     Dosage: 100 ?G, Q1HR
     Route: 061
     Dates: start: 20150826, end: 20150929
  14. LITICAN                            /00690801/ [Concomitant]
     Active Substance: ALIZAPRIDE
     Indication: NAUSEA
     Dosage: 50 MG, UNK
     Route: 048
     Dates: start: 20150826, end: 20160202
  15. ARANESP [Concomitant]
     Active Substance: DARBEPOETIN ALFA
     Indication: ANAEMIA
     Dosage: 500 ?G, UNK
     Route: 058
     Dates: start: 20151020, end: 20151020
  16. FORLAX [Concomitant]
     Active Substance: POLYETHYLENE GLYCOL 4000
     Indication: CONSTIPATION
     Dosage: 20 MG, UNK
     Route: 048
     Dates: start: 20151208, end: 20160322
  17. NESTROLAN [Concomitant]
     Indication: NERVOUSNESS
     Dosage: 100 MG, QD
     Route: 048
     Dates: start: 20151210
  18. ARLEVERTAN [Concomitant]
     Active Substance: CINNARIZINE\DIMENHYDRINATE
     Indication: VERTIGO
     Dosage: 20 MG, QD
     Route: 048
     Dates: start: 20160112, end: 20160202
  19. BEFACT                             /00527001/ [Concomitant]
     Indication: ANAEMIA
     Dosage: UNK, BID
     Route: 048
     Dates: start: 20160601
  20. MELPHALAN. [Suspect]
     Active Substance: MELPHALAN
     Indication: PLASMA CELL MYELOMA
     Dosage: 16 MG, UNK
     Route: 048
     Dates: start: 20150908
  21. LASIX [Concomitant]
     Active Substance: FUROSEMIDE
     Dosage: 40 MG, QD
     Route: 048
     Dates: start: 20160503, end: 20160524
  22. PANTOPRAZOLE [Concomitant]
     Active Substance: PANTOPRAZOLE
     Indication: PROPHYLAXIS
     Dosage: 40 MG, QD
     Route: 048
     Dates: start: 20150826
  23. DUROGESIC [Concomitant]
     Active Substance: FENTANYL
     Indication: PERIPHERAL SENSORY NEUROPATHY
     Dosage: 200 ?G, UNK
     Route: 061
     Dates: start: 20160503, end: 20160621
  24. DUROGESIC [Concomitant]
     Active Substance: FENTANYL
     Dosage: 150 ?G, UNK
     Route: 061
     Dates: start: 20150929, end: 20151009
  25. ZYLORIC [Concomitant]
     Active Substance: ALLOPURINOL
     Indication: GOUT
     Dosage: 100 MG, BID
     Route: 048
     Dates: start: 2015
  26. CASODEX [Concomitant]
     Active Substance: BICALUTAMIDE
     Indication: PROSTATE CANCER
     Dosage: 50 MG, QD
     Route: 048
     Dates: start: 2015
  27. CLEXANE [Concomitant]
     Active Substance: ENOXAPARIN SODIUM
     Indication: DEEP VEIN THROMBOSIS
     Dosage: 80 MG, QD
     Route: 058
     Dates: start: 20160112, end: 20160202
  28. LASIX [Concomitant]
     Active Substance: FUROSEMIDE
     Indication: OEDEMA PERIPHERAL
     Dosage: 20 MG, QD
     Route: 048
     Dates: start: 20160524, end: 20160528
  29. MAGALDRATE [Concomitant]
     Active Substance: MAGALDRATE
     Indication: DYSPEPSIA
     Dosage: 10 ML, UNK
     Route: 048
     Dates: start: 20160602
  30. CO-DIOVANE [Concomitant]
     Indication: HYPERTENSION
     Dosage: UNK, QD
     Route: 048
     Dates: start: 2015, end: 20160528
  31. SULPIRIDE [Concomitant]
     Active Substance: SULPIRIDE
     Indication: PSYCHOTIC DISORDER
     Dosage: 200 MG, QD
     Route: 048
     Dates: start: 20150826
  32. DUROGESIC [Concomitant]
     Active Substance: FENTANYL
     Indication: PAIN
     Dosage: 150 ?G, UNK
     Route: 061
     Dates: start: 20160209, end: 20160502
  33. OXYNORM [Concomitant]
     Active Substance: OXYCODONE HYDROCHLORIDE
     Indication: PAIN
     Dosage: 10 MG, QID
     Route: 048
     Dates: start: 20150826, end: 20151208
  34. OXYNORM [Concomitant]
     Active Substance: OXYCODONE HYDROCHLORIDE
     Dosage: 20 MG, UNK
     Route: 048
     Dates: start: 20151208, end: 20160202

REACTIONS (10)
  - Oedema peripheral [Unknown]
  - Dyspepsia [Unknown]
  - Deep vein thrombosis [Unknown]
  - Dizziness [Unknown]
  - Pain [Unknown]
  - Vertigo [Unknown]
  - Nervousness [Unknown]
  - Peripheral sensory neuropathy [Unknown]
  - Constipation [Unknown]
  - Bronchitis [Unknown]

NARRATIVE: CASE EVENT DATE: 20151019
